FAERS Safety Report 7493357-9 (Version None)
Quarter: 2011Q2

REPORT INFORMATION
  Report Type: 
  Country: None (occurrence: None)
  Receive Date: 20110520
  Receipt Date: 20110517
  Transmission Date: 20111010
  Serious: Yes (Other)
  Sender: FDA-Public Use
  Company Number: US-PFIZER INC-2011057867

PATIENT
  Age: 51 Year

DRUGS (4)
  1. BUSPAR [Concomitant]
  2. PROZAC [Concomitant]
  3. LIPITOR [Suspect]
     Dosage: 20 MG, 1X/DAY
     Route: 048
     Dates: start: 20010101, end: 20110311
  4. TRICOR [Concomitant]

REACTIONS (1)
  - HYPERCALCAEMIA [None]
